FAERS Safety Report 16835796 (Version 1)
Quarter: 2019Q3

REPORT INFORMATION
  Report Type: Report from Study
  Country: US (occurrence: US)
  Receive Date: 20190920
  Receipt Date: 20190920
  Transmission Date: 20191005
  Serious: Yes (Life-Threatening, Other)
  Sender: FDA-Public Use
  Company Number: US-TESARO-2019-TSO02933-US

PATIENT
  Age: 66 Year
  Sex: Female

DRUGS (2)
  1. NIRAPARIB [Suspect]
     Active Substance: NIRAPARIB
     Indication: OVARIAN CANCER
     Dosage: 100 MG, QD
     Route: 048
     Dates: start: 20190815
  2. NIRAPARIB [Suspect]
     Active Substance: NIRAPARIB
     Dosage: 300 MG, PM WITH FOOD
     Route: 048
     Dates: start: 2019

REACTIONS (15)
  - Oral mucosal blistering [Not Recovered/Not Resolved]
  - Swollen tongue [Not Recovered/Not Resolved]
  - Lip pain [Unknown]
  - Decreased appetite [Unknown]
  - Underdose [Unknown]
  - Vaginal neoplasm [Not Recovered/Not Resolved]
  - Oral pain [Unknown]
  - Nausea [Unknown]
  - Constipation [Recovering/Resolving]
  - Carbohydrate antigen 125 increased [Not Recovered/Not Resolved]
  - Dysgeusia [Not Recovered/Not Resolved]
  - Asthenia [Recovering/Resolving]
  - Platelet count decreased [Not Recovered/Not Resolved]
  - Hypoaesthesia [Unknown]
  - Fatigue [Recovering/Resolving]

NARRATIVE: CASE EVENT DATE: 20190822
